FAERS Safety Report 13364022 (Version 2)
Quarter: 2017Q1

REPORT INFORMATION
  Report Type: Spontaneous
  Country: US (occurrence: US)
  Receive Date: 20170323
  Receipt Date: 20170324
  Transmission Date: 20170429
  Serious: Yes (Life-Threatening)
  Sender: FDA-Public Use
  Company Number: US-ELI_LILLY_AND_COMPANY-US201608003893

PATIENT
  Age: 51 Year
  Sex: Female
  Weight: 73.92 kg

DRUGS (8)
  1. CYMBALTA [Suspect]
     Active Substance: DULOXETINE HYDROCHLORIDE
     Indication: DEPRESSION
     Dosage: 60 MG, QD
     Route: 048
     Dates: start: 20051107, end: 200907
  2. KLONOPIN [Concomitant]
     Active Substance: CLONAZEPAM
     Indication: ANXIETY
     Dosage: UNK, UNKNOWN
     Route: 065
  3. CYMBALTA [Suspect]
     Active Substance: DULOXETINE HYDROCHLORIDE
     Dosage: 60 MG, QD
     Route: 048
     Dates: start: 2011, end: 201409
  4. MIRAPEX [Concomitant]
     Active Substance: PRAMIPEXOLE DIHYDROCHLORIDE
     Indication: PRODUCT USED FOR UNKNOWN INDICATION
     Dosage: UNK, UNKNOWN
     Route: 065
  5. CYMBALTA [Suspect]
     Active Substance: DULOXETINE HYDROCHLORIDE
     Dosage: 120 MG, QD
     Route: 048
     Dates: start: 201409, end: 201410
  6. CYMBALTA [Suspect]
     Active Substance: DULOXETINE HYDROCHLORIDE
     Dosage: 60 MG, QD
     Route: 048
     Dates: start: 201411
  7. CYMBALTA [Suspect]
     Active Substance: DULOXETINE HYDROCHLORIDE
     Indication: PAIN
     Dosage: 90 MG, QD
     Route: 048
     Dates: start: 200907, end: 2012
  8. CYMBALTA [Suspect]
     Active Substance: DULOXETINE HYDROCHLORIDE
     Indication: ANXIETY
     Dosage: 30 MG, QD
     Route: 048
     Dates: start: 20051011

REACTIONS (34)
  - Amnesia [Unknown]
  - Tremor [Unknown]
  - Fatigue [Unknown]
  - Dyspnoea [Unknown]
  - Photophobia [Unknown]
  - Weight decreased [Unknown]
  - Neck pain [Unknown]
  - Vertigo [Unknown]
  - Vomiting [Unknown]
  - Anxiety [Unknown]
  - Lethargy [Unknown]
  - Intentional product misuse [Unknown]
  - Dysphagia [Unknown]
  - Sensory disturbance [Unknown]
  - Paraesthesia [Unknown]
  - Dysphoria [Unknown]
  - Confusional state [Unknown]
  - Muscle spasms [Unknown]
  - Thinking abnormal [Unknown]
  - Affect lability [Unknown]
  - Suicidal ideation [Unknown]
  - Seizure [Unknown]
  - Drug withdrawal syndrome [Unknown]
  - Nausea [Unknown]
  - Diarrhoea [Unknown]
  - Dizziness [Unknown]
  - Tinnitus [Unknown]
  - Hypoaesthesia [Unknown]
  - Chest pain [Unknown]
  - Suicide attempt [Unknown]
  - Insomnia [Unknown]
  - Pain in extremity [Unknown]
  - Hyperhidrosis [Unknown]
  - Headache [Unknown]

NARRATIVE: CASE EVENT DATE: 201402
